FAERS Safety Report 14953098 (Version 1)
Quarter: 2018Q2

REPORT INFORMATION
  Report Type: Spontaneous
  Country: US (occurrence: US)
  Receive Date: 20180530
  Receipt Date: 20180530
  Transmission Date: 20180711
  Serious: Yes (Other)
  Sender: FDA-Public Use
  Company Number: US-EPIC PHARMA LLC-2017EPC00131

PATIENT
  Sex: Female

DRUGS (1)
  1. MECLIZINE HCL [Suspect]
     Active Substance: MECLIZINE HYDROCHLORIDE

REACTIONS (1)
  - Hypersensitivity [Unknown]
